FAERS Safety Report 6437107-3 (Version None)
Quarter: 2009Q4

REPORT INFORMATION
  Report Type: 
  Country: None (occurrence: None)
  Receive Date: 20091112
  Receipt Date: 20091102
  Transmission Date: 20100525
  Serious: Yes (Hospitalization)
  Sender: FDA-Public Use
  Company Number: US-JNJFOC-20090908695

PATIENT
  Sex: Female

DRUGS (7)
  1. SIMPONI [Suspect]
     Indication: RHEUMATOID ARTHRITIS
     Route: 058
  2. METHOTREXATE [Concomitant]
  3. PLAQUENIL [Concomitant]
  4. FOSAMAX [Concomitant]
  5. ZOLOFT [Concomitant]
  6. NORVASC [Concomitant]
  7. FOLIC ACID [Concomitant]

REACTIONS (1)
  - PNEUMONIA [None]
